FAERS Safety Report 6781982-X (Version None)
Quarter: 2010Q2

REPORT INFORMATION
  Report Type: 
  Country: None (occurrence: None)
  Receive Date: 20100520
  Receipt Date: 20090625
  Transmission Date: 20101027
  Serious: Yes (Other)
  Sender: FDA-Public Use
  Company Number: 2009233454

PATIENT
  Age: 62 Year
  Sex: Female
  Weight: 76 kg

DRUGS (5)
  1. PROVERA [Suspect]
     Indication: HORMONE REPLACEMENT THERAPY
     Dosage: 10 MG, ORAL; 0.5 MG, ORAL
     Route: 048
     Dates: start: 19750101, end: 19860101
  2. PROVERA [Suspect]
     Indication: HORMONE REPLACEMENT THERAPY
     Dosage: 10 MG, ORAL; 0.5 MG, ORAL
     Route: 048
     Dates: start: 19860101, end: 20010101
  3. OGEN [Suspect]
     Indication: HORMONE REPLACEMENT THERAPY
     Dosage: 1.25 MG , ORAL
     Route: 048
     Dates: start: 19750101, end: 19770101
  4. ESTRACE [Suspect]
     Indication: HORMONE REPLACEMENT THERAPY
     Dosage: 0.2 MG
     Dates: start: 19790101, end: 19860101
  5. PREMARIN [Suspect]
     Indication: HORMONE REPLACEMENT THERAPY
     Dosage: 0.625 MG
     Dates: start: 19860101, end: 20010101

REACTIONS (1)
  - BREAST CANCER [None]
